FAERS Safety Report 9767392 (Version 2)
Quarter: 2014Q1

REPORT INFORMATION
  Report Type: Report from Study
  Country: DE (occurrence: DE)
  Receive Date: 20131217
  Receipt Date: 20140128
  Transmission Date: 20141002
  Serious: Yes (Hospitalization, Other)
  Sender: FDA-Public Use
  Company Number: DE-ABBVIE-13P-062-1178962-00

PATIENT
  Age: 76 Year
  Sex: Male

DRUGS (8)
  1. HUMIRA [Suspect]
     Indication: COLITIS ULCERATIVE
     Route: 058
     Dates: start: 20131203, end: 20140117
  2. SIMVASTATIN [Concomitant]
     Indication: PRODUCT USED FOR UNKNOWN INDICATION
  3. PANTOZOL [Concomitant]
     Indication: PRODUCT USED FOR UNKNOWN INDICATION
  4. KALINOR [Concomitant]
     Indication: PRODUCT USED FOR UNKNOWN INDICATION
  5. CALCILAC [Concomitant]
     Indication: PRODUCT USED FOR UNKNOWN INDICATION
  6. SALOFALK [Concomitant]
     Indication: PRODUCT USED FOR UNKNOWN INDICATION
  7. FUCIDIN [Concomitant]
     Indication: PRODUCT USED FOR UNKNOWN INDICATION
  8. RAMIPRIL [Concomitant]
     Indication: PRODUCT USED FOR UNKNOWN INDICATION

REACTIONS (3)
  - Haematochezia [Recovering/Resolving]
  - Wound haemorrhage [Unknown]
  - Left ventricular failure [Recovering/Resolving]
